FAERS Safety Report 9401252 (Version 1)
Quarter: 2013Q3

REPORT INFORMATION
  Report Type: Spontaneous
  Country: BR (occurrence: BR)
  Receive Date: 20130715
  Receipt Date: 20130715
  Transmission Date: 20140515
  Serious: Yes (Other)
  Sender: FDA-Public Use
  Company Number: BR-PFIZER INC-2013204842

PATIENT
  Age: 25 Year
  Sex: Female

DRUGS (3)
  1. PRISTIQ [Suspect]
     Indication: ANXIETY
     Dosage: UNK
     Route: 048
     Dates: start: 20130622
  2. PRISTIQ [Interacting]
     Indication: WEIGHT CONTROL
  3. PURAN T4 [Interacting]

REACTIONS (14)
  - Drug interaction [Unknown]
  - Shock [Unknown]
  - Abasia [Unknown]
  - Dyskinesia [Unknown]
  - Tremor [Unknown]
  - Feeling abnormal [Unknown]
  - Formication [Unknown]
  - Chest pain [Unknown]
  - Vomiting [Unknown]
  - Tachycardia [Not Recovered/Not Resolved]
  - Visual impairment [Unknown]
  - Blood pressure increased [Unknown]
  - Dizziness [Unknown]
  - Off label use [Unknown]
